FAERS Safety Report 7486237-6 (Version None)
Quarter: 2011Q2

REPORT INFORMATION
  Report Type: 
  Country: None (occurrence: None)
  Receive Date: 20110517
  Receipt Date: 20110221
  Transmission Date: 20111010
  Serious: No
  Sender: FDA-Public Use
  Company Number: A0914681A

PATIENT
  Age: 36 Year
  Sex: Male

DRUGS (2)
  1. PENICILLIN [Concomitant]
  2. VOTRIENT [Suspect]
     Dosage: 4TAB PER DAY
     Route: 048
     Dates: start: 20110117

REACTIONS (1)
  - SKIN HYPOPIGMENTATION [None]
